FAERS Safety Report 8686807 (Version 3)
Quarter: 2014Q2

REPORT INFORMATION
  Report Type: Spontaneous
  Country: FR (occurrence: FR)
  Receive Date: 20120727
  Receipt Date: 20140602
  Transmission Date: 20141212
  Serious: Yes (Hospitalization, Other)
  Sender: FDA-Public Use
  Company Number: FR-MSD-1207FRA007258

PATIENT
  Age: 45 Year
  Sex: Male
  Weight: 89 kg

DRUGS (13)
  1. VICTRELIS [Suspect]
     Indication: HEPATITIS C
     Dosage: 800 MG, TID
     Dates: start: 20110719
  2. VIRAFERONPEG [Suspect]
     Indication: HEPATITIS C
     Dosage: 180 MICROGRAM, QW
     Dates: start: 20110615
  3. REBETOL [Suspect]
     Indication: HEPATITIS C
     Dosage: 1200 MG, QD
     Dates: start: 20110615
  4. ATENOLOL [Concomitant]
     Indication: HYPERTENSION
     Dosage: 50 MG, UNK
  5. DEXERYL CREAM [Concomitant]
     Indication: PRURITUS
     Dosage: UNK, UNKNOWN
     Dates: start: 20110823
  6. ACETAMINOPHEN [Concomitant]
     Indication: HEADACHE
     Dosage: UNK UNK, UNKNOWN
     Dates: start: 20110823
  7. IMODIUM [Concomitant]
     Indication: DIARRHOEA
     Dosage: 2 MG, QD
     Dates: start: 20110823
  8. SMECTA [Concomitant]
     Indication: DIARRHOEA
     Dosage: 3 G, UNKNOWN
     Dates: start: 20110913
  9. TIORFAN [Concomitant]
     Indication: DIARRHOEA
     Dosage: 100 MG, QD
     Dates: start: 20110913
  10. SOLIAN [Concomitant]
     Indication: PSYCHIATRIC SYMPTOM
     Dosage: 100 MG, QD
     Dates: start: 20111011
  11. VOGALENE [Concomitant]
     Indication: NAUSEA
     Dosage: 7.5 MG, PRN
     Dates: start: 20111011
  12. ATARAX (ALPRAZOLAM) [Concomitant]
     Indication: PRURITUS
     Dosage: ?50 MG, BID
     Dates: start: 20111206
  13. DALACINE [Concomitant]
     Dosage: 600 MG, TID

REACTIONS (2)
  - Intervertebral disc operation [Recovered/Resolved]
  - Intervertebral discitis [Recovered/Resolved]
